FAERS Safety Report 24571217 (Version 1)
Quarter: 2024Q4

REPORT INFORMATION
  Report Type: Report from Study
  Country: US (occurrence: US)
  Receive Date: 20241101
  Receipt Date: 20241101
  Transmission Date: 20250115
  Serious: Yes (Death, Other)
  Sender: AUROBINDO
  Company Number: US-AUROBINDO-AUR-APL-2024-052308

PATIENT

DRUGS (1)
  1. VANCOMYCIN [Suspect]
     Active Substance: VANCOMYCIN
     Indication: Product used for unknown indication
     Dosage: DURATION OF THERAPY 30 DAYS
     Route: 042

REACTIONS (6)
  - Mixed liver injury [Fatal]
  - Drug reaction with eosinophilia and systemic symptoms [Fatal]
  - Renal injury [Fatal]
  - Pyrexia [Fatal]
  - Rash [Fatal]
  - Eosinophilia [Fatal]
